FAERS Safety Report 19818695 (Version 1)
Quarter: 2021Q3

REPORT INFORMATION
  Report Type: Spontaneous
  Country: CA (occurrence: CA)
  Receive Date: 20210912
  Receipt Date: 20210912
  Transmission Date: 20211014
  Serious: Yes (Death)
  Sender: FDA-Public Use
  Company Number: CA-TEVA-2021-CA-1950944

PATIENT
  Age: 61 Year
  Sex: Female
  Weight: 89 kg

DRUGS (19)
  1. CARBOPLATIN. [Suspect]
     Active Substance: CARBOPLATIN
     Indication: OVARIAN CANCER
     Route: 042
  2. DILAUDID [Concomitant]
     Active Substance: HYDROMORPHONE HYDROCHLORIDE
  3. GLICLAZIDE [Concomitant]
     Active Substance: GLICLAZIDE
  4. LASIX [Concomitant]
     Active Substance: FUROSEMIDE
  5. PANTOLOC [Concomitant]
     Active Substance: PANTOPRAZOLE SODIUM
  6. ASA [Concomitant]
     Active Substance: ASPIRIN
     Route: 065
  7. CAELYX SINGLE USE VIALS. 20MG/10ML AND 50MG/25ML. PEG. LIPOSOMAL SUSPE [Suspect]
     Active Substance: DOXORUBICIN HYDROCHLORIDE
     Indication: OVARIAN CANCER
     Route: 042
  8. ATIVAN [Concomitant]
     Active Substance: LORAZEPAM
  9. BISOPROLOL [Concomitant]
     Active Substance: BISOPROLOL
  10. EFFEXOR [Concomitant]
     Active Substance: VENLAFAXINE HYDROCHLORIDE
  11. METFORMIN [Concomitant]
     Active Substance: METFORMIN HYDROCHLORIDE
  12. FOSAVANCE [Concomitant]
     Active Substance: ALENDRONATE SODIUM\CHOLECALCIFEROL
  13. LOSARTAN. [Concomitant]
     Active Substance: LOSARTAN
  14. ZYPREXA [Concomitant]
     Active Substance: OLANZAPINE
  15. MESNA. [Concomitant]
     Active Substance: MESNA
  16. POTASSIUM [Concomitant]
     Active Substance: POTASSIUM
  17. MAGNESIUM [Concomitant]
     Active Substance: MAGNESIUM
  18. CALCIUM + VITAMIN D [Concomitant]
     Active Substance: CALCIUM\VITAMIN D
  19. CRESTOR [Concomitant]
     Active Substance: ROSUVASTATIN CALCIUM

REACTIONS (2)
  - Cardiac failure [Fatal]
  - Ejection fraction decreased [Fatal]
